FAERS Safety Report 10219287 (Version 1)
Quarter: 2014Q1

REPORT INFORMATION
  Report Type: Spontaneous
  Country: US (occurrence: None)
  Receive Date: 20140306
  Receipt Date: 20140306
  Transmission Date: 20141002
  Serious: Yes (Other)
  Sender: FDA-Public Use
  Company Number: 163-21880-10063197

PATIENT
  Age: 73 Year
  Sex: Male

DRUGS (7)
  1. REVLIMID [Suspect]
     Indication: PLASMA CELL MYELOMA
     Route: 048
     Dates: start: 200908
  2. DEXAMETHASONE (DEXAMETHASONE) [Concomitant]
  3. NIACIN (NICOTINIC ACID) [Concomitant]
  4. ENALAPRIL (ENALAPRIL) [Concomitant]
  5. FISH OIL (FISH OIL) [Concomitant]
  6. MULTIVITAMINS (MULTIVITAMINS) [Concomitant]
  7. ASPIRIN (ACETYLSALICYLIC ACID) [Concomitant]

REACTIONS (1)
  - Thrombocytopenia [None]
